FAERS Safety Report 6239702-3 (Version None)
Quarter: 2009Q2

REPORT INFORMATION
  Report Type: 
  Country: None (occurrence: None)
  Receive Date: 20090619
  Receipt Date: 20090605
  Transmission Date: 20091009
  Serious: Yes (Death, Other)
  Sender: FDA-Public Use
  Company Number: 2009AL003835

PATIENT
  Age: 47 Year
  Sex: Male

DRUGS (12)
  1. RANITIDINE SYRUP (RANITIDINE ORAL(RANITIDINE SYRUP (RANITIDINE ORAL SY [Suspect]
     Indication: PROPHYLAXIS
  2. SULFATRIM AND SULFATRIM PEDIATRIC SUSPENSION (SULFAMETHOXAZOLE/TRIMETH [Suspect]
     Indication: PROPHYLAXIS
  3. ACYCLOVIR TABLETS, 800 MG (PUREPAC) (ACYCLOVIR [Suspect]
     Indication: PROPHYLAXIS
  4. DOXORUBICIN HCL [Concomitant]
  5. FLUCONAZOLE [Concomitant]
  6. VALACYCLOVIR HCL [Concomitant]
  7. VINBLASTINE SULFATE [Concomitant]
  8. VINCRISTINE [Concomitant]
  9. ETOPOSIDE [Concomitant]
  10. CHLORMETHINE [Concomitant]
  11. PREDNISONE TAB [Concomitant]
  12. BLEOMYCIN SULFATE [Concomitant]

REACTIONS (2)
  - INTERSTITIAL LUNG DISEASE [None]
  - LIP AND/OR ORAL CAVITY CANCER [None]
